FAERS Safety Report 9263471 (Version 1)
Quarter: 2013Q2

REPORT INFORMATION
  Report Type: Spontaneous
  Country: US (occurrence: US)
  Receive Date: 20130430
  Receipt Date: 20130430
  Transmission Date: 20140414
  Serious: No
  Sender: FDA-Public Use
  Company Number: US-ABBOTT-13P-163-1042451-00

PATIENT
  Age: 37 Year
  Sex: Male
  Weight: 70.37 kg

DRUGS (3)
  1. CREON 24,000 [Suspect]
     Indication: PANCREATITIS CHRONIC
     Dosage: 1 WITH EACH MEAL
     Dates: start: 201301, end: 20130126
  2. FENTANYL [Concomitant]
     Indication: PANCREATITIS
  3. OXYCODONE [Concomitant]
     Indication: PANCREATITIS

REACTIONS (1)
  - Headache [Recovered/Resolved]
